FAERS Safety Report 12752554 (Version 2)
Quarter: 2017Q3

REPORT INFORMATION
  Report Type: Spontaneous
  Country: US (occurrence: US)
  Receive Date: 20160915
  Receipt Date: 20170914
  Transmission Date: 20171127
  Serious: No
  Sender: FDA-Public Use
  Company Number: US-ASTELLAS-2015US037031

PATIENT
  Age: 58 Year
  Sex: Male

DRUGS (1)
  1. XTANDI [Suspect]
     Active Substance: ENZALUTAMIDE
     Indication: PROSTATE CANCER
     Dosage: 160 MG, ONCE DAILY (40 MG X 4) BY MOUTH
     Route: 048
     Dates: start: 20150610

REACTIONS (7)
  - Dry eye [Unknown]
  - White blood cell count decreased [Unknown]
  - Visual impairment [Unknown]
  - Amnesia [Unknown]
  - Glaucoma [Unknown]
  - Amnesia [Unknown]
  - Platelet count decreased [Unknown]

NARRATIVE: CASE EVENT DATE: 201506
